FAERS Safety Report 12037570 (Version 1)
Quarter: 2016Q1

REPORT INFORMATION
  Report Type: Spontaneous
  Country: US (occurrence: None)
  Receive Date: 20160205
  Receipt Date: 20160205
  Transmission Date: 20160526
  Serious: Yes (Other)
  Sender: FDA-Public Use
  Company Number: None

PATIENT
  Age: 62 Year
  Sex: Female
  Weight: 86.18 kg

DRUGS (2)
  1. REPATHA [Suspect]
     Active Substance: EVOLOCUMAB
     Indication: DRUG INTOLERANCE
     Dosage: INJ EVERY 2 WEEKS  EVERY 2 WEEKS SUB CU
     Route: 058
     Dates: start: 20151203, end: 20160101
  2. REPATHA [Suspect]
     Active Substance: EVOLOCUMAB
     Indication: BLOOD CHOLESTEROL INCREASED
     Dosage: INJ EVERY 2 WEEKS  EVERY 2 WEEKS SUB CU
     Route: 058
     Dates: start: 20151203, end: 20160101

REACTIONS (15)
  - Respiratory tract oedema [None]
  - Thyroiditis [None]
  - Tooth abscess [None]
  - Sinus disorder [None]
  - Eustachian tube disorder [None]
  - Renal disorder [None]
  - Asthma [None]
  - Pharyngeal oedema [None]
  - Decreased appetite [None]
  - Bone pain [None]
  - Myalgia [None]
  - Gingival swelling [None]
  - Bacterial infection [None]
  - Headache [None]
  - Nasal congestion [None]

NARRATIVE: CASE EVENT DATE: 20160101
